FAERS Safety Report 10060804 (Version 1)
Quarter: 2014Q2

REPORT INFORMATION
  Report Type: Spontaneous
  Country: IR (occurrence: IR)
  Receive Date: 20140404
  Receipt Date: 20140404
  Transmission Date: 20141212
  Serious: Yes (Death)
  Sender: FDA-Public Use
  Company Number: IR-ABBVIE-14P-080-1220622-00

PATIENT
  Sex: Male

DRUGS (8)
  1. CYCLOSPORINE A [Suspect]
     Indication: PROPHYLAXIS AGAINST GRAFT VERSUS HOST DISEASE
  2. CYCLOSPORINE A [Suspect]
  3. CYCLOSPORINE A [Suspect]
  4. METHYLPREDNISOLONE [Suspect]
     Indication: PROPHYLAXIS AGAINST GRAFT VERSUS HOST DISEASE
     Route: 042
  5. METHYLPREDNISOLONE [Suspect]
  6. FLUDARABINE [Suspect]
     Indication: HISTIOCYTOSIS HAEMATOPHAGIC
     Route: 042
  7. MELPHALAN [Suspect]
     Indication: HISTIOCYTOSIS HAEMATOPHAGIC
     Route: 042
  8. HORSE ATG [Suspect]
     Indication: HISTIOCYTOSIS HAEMATOPHAGIC

REACTIONS (1)
  - Chronic graft versus host disease [Fatal]
